FAERS Safety Report 6501786-2 (Version None)
Quarter: 2009Q4

REPORT INFORMATION
  Report Type: 
  Country: None (occurrence: None)
  Receive Date: 20091216
  Receipt Date: 20091209
  Transmission Date: 20100525
  Serious: Yes (Other)
  Sender: FDA-Public Use
  Company Number: US-PFIZER INC-2009282446

PATIENT
  Sex: Female
  Weight: 70.3 kg

DRUGS (20)
  1. CHANTIX [Suspect]
     Indication: SMOKING CESSATION THERAPY
     Dosage: 0.5 MG, 1X/DAY
     Dates: start: 20091001, end: 20091101
  2. SIMVASTATIN [Concomitant]
     Indication: BLOOD CHOLESTEROL
     Dosage: 80 MG, 1X/DAY
  3. CLONIDINE [Concomitant]
     Indication: BLOOD PRESSURE
     Dosage: 0.1 MG, 2X/DAY
  4. CLONAZEPAM [Concomitant]
     Indication: ANXIETY
     Dosage: 0.5 MG, 3X/DAY
  5. BUSPAR [Concomitant]
     Dosage: 30 MG, 2X/DAY
  6. POTASSIUM CHLORIDE [Concomitant]
     Dosage: FREQUENCY: 2X/DAY,
  7. PLAVIX [Concomitant]
     Dosage: 75 MG, 1X/DAY
     Route: 048
     Dates: start: 20030101
  8. ASPIRIN [Concomitant]
     Dosage: 81 MG, 1X/DAY
     Route: 048
     Dates: start: 20060101
  9. VENTOLIN [Concomitant]
     Indication: CHRONIC OBSTRUCTIVE PULMONARY DISEASE
     Dosage: FREQUENCY: 4 PUFFS A DAY AS NEEDED,
     Route: 055
  10. ADVAIR DISKUS 100/50 [Concomitant]
     Indication: CHRONIC OBSTRUCTIVE PULMONARY DISEASE
     Dosage: FREQUENCY: AS NEEDED,
     Route: 055
  11. ACTONEL [Concomitant]
     Indication: OSTEOPOROSIS
     Dosage: 35 MG, WEEKLY
     Route: 048
  12. BETASERON [Concomitant]
     Indication: OSTEOPOROSIS
     Dosage: 0.3 MG, ALTERNATE DAY
  13. SEROQUEL [Concomitant]
  14. METOPROLOL [Concomitant]
     Dosage: UNK
  15. AMLODIPINE [Concomitant]
     Dosage: UNK
  16. EFFEXOR XR [Concomitant]
     Dosage: UNK
  17. LOVAZA [Concomitant]
     Dosage: UNK
  18. VITAMIN E [Concomitant]
     Dosage: 400 MG, 2X/DAY
  19. ASCORBIC ACID [Concomitant]
     Dosage: 1000 MG, 3X/DAY
  20. VITAMIN D [Concomitant]
     Dosage: 1000 MG DAILY

REACTIONS (2)
  - DEPRESSION [None]
  - HALLUCINATION [None]
